FAERS Safety Report 12998437 (Version 1)
Quarter: 2016Q4

REPORT INFORMATION
  Report Type: Report from Study
  Country: US (occurrence: US)
  Receive Date: 20161205
  Receipt Date: 20161205
  Transmission Date: 20170207
  Serious: Yes (Death, Other)
  Sender: FDA-Public Use
  Company Number: US-GILEAD-2016-0247191

PATIENT
  Age: 58 Year
  Sex: Female

DRUGS (20)
  1. BACTRIM [Concomitant]
     Active Substance: SULFAMETHOXAZOLE\TRIMETHOPRIM
  2. OXYCODONE [Concomitant]
     Active Substance: OXYCODONE
  3. TIZANIDINE. [Concomitant]
     Active Substance: TIZANIDINE
  4. BREO ELLIPTA [Concomitant]
     Active Substance: FLUTICASONE FUROATE\VILANTEROL TRIFENATATE
  5. LASIX [Concomitant]
     Active Substance: FUROSEMIDE
  6. SODIUM CHLORIDE. [Concomitant]
     Active Substance: SODIUM CHLORIDE
  7. SPIRIVA [Concomitant]
     Active Substance: TIOTROPIUM BROMIDE MONOHYDRATE
  8. IPRATROPIUM [Concomitant]
     Active Substance: IPRATROPIUM
  9. SINGULAIR [Concomitant]
     Active Substance: MONTELUKAST SODIUM
  10. MOVANTIK [Concomitant]
     Active Substance: NALOXEGOL OXALATE
  11. BUPROPION. [Concomitant]
     Active Substance: BUPROPION
  12. VENTOLIN [Concomitant]
     Active Substance: ALBUTEROL SULFATE
  13. CYMBALTA [Concomitant]
     Active Substance: DULOXETINE HYDROCHLORIDE
  14. ZANAFLEX [Concomitant]
     Active Substance: TIZANIDINE HYDROCHLORIDE
  15. MUPIROCIN. [Concomitant]
     Active Substance: MUPIROCIN
  16. REVATIO [Concomitant]
     Active Substance: SILDENAFIL CITRATE
  17. AMBRISENTAN [Suspect]
     Active Substance: AMBRISENTAN
     Indication: PULMONARY ARTERIAL HYPERTENSION
     Dosage: 5 MG, QD
     Route: 065
     Dates: start: 20160412
  18. KLOR-CON [Concomitant]
     Active Substance: POTASSIUM CHLORIDE
  19. XANAX [Concomitant]
     Active Substance: ALPRAZOLAM
  20. OXYBUTYNIN [Concomitant]
     Active Substance: OXYBUTYNIN

REACTIONS (1)
  - Death [Fatal]
